FAERS Safety Report 8429213-9 (Version None)
Quarter: 2012Q2

REPORT INFORMATION
  Report Type: 
  Country: None (occurrence: None)
  Receive Date: 20120612
  Receipt Date: 20120605
  Transmission Date: 20120825
  Serious: Yes (Hospitalization)
  Sender: FDA-Public Use
  Company Number: PHHY2012TW047919

PATIENT
  Age: 60 Year
  Sex: Female

DRUGS (1)
  1. MIACALCIN [Suspect]
     Indication: OSTEOPOROSIS
     Dates: start: 20120604

REACTIONS (5)
  - HYPERTENSION [None]
  - VOMITING [None]
  - NAUSEA [None]
  - TREMOR [None]
  - COLD SWEAT [None]
